FAERS Safety Report 21073940 (Version 2)
Quarter: 2022Q3

REPORT INFORMATION
  Report Type: Spontaneous
  Country: US (occurrence: US)
  Receive Date: 20220713
  Receipt Date: 20220714
  Transmission Date: 20221027
  Serious: No
  Sender: FDA-Public Use
  Company Number: US-JNJFOC-20220713171

PATIENT
  Age: 31 Year
  Sex: Female

DRUGS (9)
  1. TYLENOL [Suspect]
     Active Substance: ACETAMINOPHEN
     Indication: Pain in extremity
     Route: 065
     Dates: start: 2022
  2. TYLENOL [Suspect]
     Active Substance: ACETAMINOPHEN
     Indication: Myalgia
  3. TYLENOL [Suspect]
     Active Substance: ACETAMINOPHEN
     Indication: Hypotension
  4. TYLENOL [Suspect]
     Active Substance: ACETAMINOPHEN
     Indication: Lethargy
  5. TYLENOL [Suspect]
     Active Substance: ACETAMINOPHEN
     Indication: Asthenia
  6. TYLENOL [Suspect]
     Active Substance: ACETAMINOPHEN
     Indication: Abnormal sensation in eye
  7. UPTRAVI [Concomitant]
     Active Substance: SELEXIPAG
     Indication: Product used for unknown indication
     Route: 065
     Dates: start: 202205
  8. UPTRAVI [Concomitant]
     Active Substance: SELEXIPAG
     Route: 065
     Dates: start: 20220622
  9. OPSUMIT [Concomitant]
     Active Substance: MACITENTAN
     Indication: Product used for unknown indication
     Route: 065
     Dates: start: 202203

REACTIONS (2)
  - Drug ineffective [Unknown]
  - Off label use [Unknown]

NARRATIVE: CASE EVENT DATE: 20220101
